FAERS Safety Report 7823143-9 (Version None)
Quarter: 2011Q4

REPORT INFORMATION
  Report Type: 
  Country: None (occurrence: None)
  Receive Date: 20111019
  Receipt Date: 20111011
  Transmission Date: 20120403
  Serious: No
  Sender: FDA-Public Use
  Company Number: US-BIOGENIDEC-2011BI020001

PATIENT
  Age: 52 Year
  Sex: Female

DRUGS (3)
  1. AVONEX [Concomitant]
     Indication: MULTIPLE SCLEROSIS
     Route: 030
  2. LYRICA [Concomitant]
     Indication: PAIN IN EXTREMITY
  3. TYSABRI [Suspect]
     Indication: MULTIPLE SCLEROSIS
     Route: 042
     Dates: start: 20110524

REACTIONS (7)
  - MOOD SWINGS [None]
  - PAIN IN EXTREMITY [None]
  - CRYING [None]
  - ANGER [None]
  - MOOD ALTERED [None]
  - HEADACHE [None]
  - JOINT SWELLING [None]
